FAERS Safety Report 9612576 (Version 3)
Quarter: 2013Q4

REPORT INFORMATION
  Report Type: Spontaneous
  Country: US (occurrence: US)
  Receive Date: 20131010
  Receipt Date: 20131107
  Transmission Date: 20140711
  Serious: Yes (Other)
  Sender: FDA-Public Use
  Company Number: US-SA-2013SA097184

PATIENT
  Sex: Female

DRUGS (1)
  1. ALLEGRA 24 HOUR [Suspect]
     Indication: HYPERSENSITIVITY
     Dosage: PRODUCT START DATE:-10 YEARS AGO
     Route: 048

REACTIONS (5)
  - Fungal infection [Not Recovered/Not Resolved]
  - Arthropathy [Unknown]
  - Incorrect dose administered [Unknown]
  - Skin burning sensation [Unknown]
  - Adverse event [Unknown]
